FAERS Safety Report 25992665 (Version 1)
Quarter: 2025Q4

REPORT INFORMATION
  Report Type: Spontaneous
  Country: US (occurrence: US)
  Receive Date: 20251103
  Receipt Date: 20251103
  Transmission Date: 20260117
  Serious: No
  Sender: GALPHARM INTERNATIONAL
  Company Number: US-PERRIGO-25US010958

PATIENT
  Sex: Male

DRUGS (4)
  1. UNISOM SLEEPTABS [Suspect]
     Active Substance: DOXYLAMINE SUCCINATE
     Indication: Insomnia
     Dosage: UNKNOWN, UNKNOWN
     Route: 048
     Dates: start: 20250831
  2. UNISOM SLEEPTABS [Suspect]
     Active Substance: DOXYLAMINE SUCCINATE
     Dosage: 25 MG, TWICE
     Route: 048
     Dates: start: 20250903, end: 20250903
  3. STAY AWAKE [Concomitant]
     Active Substance: CAFFEINE
     Indication: Product used for unknown indication
     Dosage: UNKNOWN, UNKNOWN
     Route: 065
  4. PAREXEL [PACLITAXEL] [Concomitant]
     Indication: Product used for unknown indication
     Dosage: UNKNOWN, UNKNOWN
     Route: 065

REACTIONS (2)
  - Therapeutic product effect decreased [Unknown]
  - Extra dose administered [Unknown]

NARRATIVE: CASE EVENT DATE: 20250903
